FAERS Safety Report 15665044 (Version 1)
Quarter: 2018Q4

REPORT INFORMATION
  Report Type: Spontaneous
  Country: US (occurrence: US)
  Receive Date: 20181128
  Receipt Date: 20181128
  Transmission Date: 20190205
  Serious: Yes (Death, Other)
  Sender: FDA-Public Use
  Company Number: None

PATIENT
  Age: 81 Year
  Sex: Female
  Weight: 50.8 kg

DRUGS (1)
  1. APIXABAN [Suspect]
     Active Substance: APIXABAN
     Indication: PULMONARY EMBOLISM
     Route: 048
     Dates: start: 20181123, end: 20181124

REACTIONS (9)
  - Subarachnoid haemorrhage [None]
  - Cerebral ventricle dilatation [None]
  - Headache [None]
  - Neurological decompensation [None]
  - Blood pressure systolic increased [None]
  - Dyspnoea [None]
  - Hydrocephalus [None]
  - Hypoxia [None]
  - Pulmonary embolism [None]

NARRATIVE: CASE EVENT DATE: 20181125
